FAERS Safety Report 6815072-4 (Version None)
Quarter: 2010Q2

REPORT INFORMATION
  Report Type: 
  Country: None (occurrence: None)
  Receive Date: 20100630
  Receipt Date: 20100630
  Transmission Date: 20101027
  Serious: No
  Sender: FDA-Public Use
  Company Number: None

PATIENT
  Age: 44 Year
  Sex: Female
  Weight: 72.5755 kg

DRUGS (1)
  1. LATISSE [Suspect]
     Indication: MENOPAUSAL SYMPTOMS
     Dosage: 1 DROP 1X/DAY TOP
     Route: 061
     Dates: start: 20100505, end: 20100601

REACTIONS (1)
  - IRIS DISORDER [None]
